FAERS Safety Report 7312824-1 (Version None)
Quarter: 2011Q1

REPORT INFORMATION
  Report Type: 
  Country: None (occurrence: None)
  Receive Date: 20110224
  Receipt Date: 20100726
  Transmission Date: 20110831
  Serious: No
  Sender: FDA-Public Use
  Company Number: US-MYLANLABS-2010S1009715

PATIENT
  Age: 85 Year
  Sex: Female

DRUGS (4)
  1. METOPROLOL TARTRATE [Suspect]
     Indication: ATRIAL FIBRILLATION
     Route: 048
  2. PREDNISONE [Concomitant]
  3. ATARAX [Concomitant]
  4. ALLEGRA [Concomitant]

REACTIONS (3)
  - REACTION TO DRUG EXCIPIENTS [None]
  - ECZEMA [None]
  - RASH [None]
